FAERS Safety Report 9245429 (Version 1)
Quarter: 2013Q2

REPORT INFORMATION
  Report Type: Spontaneous
  Country: US (occurrence: ZA)
  Receive Date: 20130422
  Receipt Date: 20130422
  Transmission Date: 20140414
  Serious: Yes (Hospitalization, Other)
  Sender: FDA-Public Use
  Company Number: ZA-PFIZER INC-2013120676

PATIENT
  Age: 23 Year
  Sex: Female

DRUGS (3)
  1. EPINEPHRINE [Suspect]
     Indication: ANAPHYLACTIC REACTION
     Dosage: 0.3 MG, SINGLE
     Route: 042
  2. BETAMETHASONE [Concomitant]
     Indication: ANAPHYLACTIC REACTION
     Dosage: 4 MG, SINGLE
     Route: 042
  3. PROMETHAZINE [Concomitant]
     Indication: ANAPHYLACTIC REACTION
     Dosage: 25 MG, SINGLE
     Route: 030

REACTIONS (1)
  - Myocardial ischaemia [Recovered/Resolved]
